FAERS Safety Report 8130550-6 (Version None)
Quarter: 2012Q1

REPORT INFORMATION
  Report Type: 
  Country: None (occurrence: None)
  Receive Date: 20120210
  Receipt Date: 20120201
  Transmission Date: 20120608
  Serious: Yes (Life-Threatening, Hospitalization, Disabling)
  Sender: FDA-Public Use
  Company Number: JP-ASTRAZENECA-2012SE08018

PATIENT
  Age: 0 Year

DRUGS (3)
  1. ACTOS [Suspect]
     Route: 064
  2. CONIEL [Concomitant]
     Route: 064
  3. CANDESARTAN CILEXETIL [Suspect]
     Route: 064

REACTIONS (4)
  - RENAL FAILURE NEONATAL [None]
  - PULMONARY HYPOPLASIA [None]
  - CARDIAC HYPERTROPHY [None]
  - APLASIA [None]
